FAERS Safety Report 17451807 (Version 1)
Quarter: 2020Q1

REPORT INFORMATION
  Report Type: Spontaneous
  Country: US (occurrence: US)
  Receive Date: 20200224
  Receipt Date: 20200224
  Transmission Date: 20200409
  Serious: Yes (Death)
  Sender: FDA-Public Use
  Company Number: None

PATIENT
  Age: 97 Year
  Sex: Female
  Weight: 59.42 kg

DRUGS (11)
  1. HYDROXYUREA 500 MG [Concomitant]
     Active Substance: HYDROXYUREA
  2. AZOPT [Concomitant]
     Active Substance: BRINZOLAMIDE
  3. NEXIUM [Concomitant]
     Active Substance: ESOMEPRAZOLE MAGNESIUM
  4. IMATINIB. [Suspect]
     Active Substance: IMATINIB MESYLATE
     Indication: CHRONIC MYELOID LEUKAEMIA
     Route: 048
     Dates: start: 20170108, end: 20200203
  5. AMLODIPINE [Concomitant]
     Active Substance: AMLODIPINE BESYLATE
  6. ENALAPRIL 20MG [Concomitant]
     Active Substance: ENALAPRIL
  7. ATENOLOL 25MG [Concomitant]
     Active Substance: ATENOLOL
  8. WARFARIN 2MG/3MG [Concomitant]
  9. VITAMIN D3 10,000 U [Concomitant]
  10. HYDROCHLOROTHIAZIDE 12.5MG [Concomitant]
     Active Substance: HYDROCHLOROTHIAZIDE
  11. LATANOPROST 0.005% [Concomitant]
     Active Substance: LATANOPROST

REACTIONS (1)
  - Death [None]

NARRATIVE: CASE EVENT DATE: 20200203
